FAERS Safety Report 8959839 (Version 1)
Quarter: 2012Q4

REPORT INFORMATION
  Report Type: 
  Country: US (occurrence: US)
  Receive Date: 20121212
  Receipt Date: 20121212
  Transmission Date: 20130627
  Serious: No
  Sender: FDA-Public Use
  Company Number: US-TEVA-328085USA

PATIENT
  Sex: Male

DRUGS (2)
  1. BUDESONIDE [Suspect]
     Indication: PROPHYLAXIS
     Dosage: 0.5 mg / 2 mL; BID
  2. SALBUTAMOL [Concomitant]

REACTIONS (3)
  - Pulmonary congestion [Unknown]
  - Cough [Unknown]
  - Dyspnoea [Unknown]
